FAERS Safety Report 12322876 (Version 1)
Quarter: 2016Q2

REPORT INFORMATION
  Report Type: Spontaneous
  Country: US (occurrence: US)
  Receive Date: 20160502
  Receipt Date: 20160502
  Transmission Date: 20160815
  Serious: No
  Sender: FDA-Public Use
  Company Number: US-JNJFOC-20160322841

PATIENT
  Sex: Male

DRUGS (1)
  1. STELARA [Suspect]
     Active Substance: USTEKINUMAB
     Indication: PSORIATIC ARTHROPATHY
     Route: 058

REACTIONS (9)
  - Hallucination [Recovered/Resolved]
  - Vomiting [Recovered/Resolved]
  - Vision blurred [Recovered/Resolved]
  - Hot flush [Recovered/Resolved]
  - Drug ineffective [Unknown]
  - Nausea [Recovered/Resolved]
  - Sinusitis [Unknown]
  - Visual impairment [Recovered/Resolved]
  - Malaise [Recovered/Resolved]
